FAERS Safety Report 12791684 (Version 2)
Quarter: 2016Q4

REPORT INFORMATION
  Report Type: Spontaneous
  Country: US (occurrence: US)
  Receive Date: 20160929
  Receipt Date: 20161013
  Transmission Date: 20170207
  Serious: No
  Sender: FDA-Public Use
  Company Number: US-AMGEN-USASP2016126086

PATIENT
  Age: 68 Year
  Sex: Male

DRUGS (4)
  1. LEVEMIR [Concomitant]
     Active Substance: INSULIN DETEMIR
     Dosage: 120 UNIT, BID
  2. NOVOLOG [Concomitant]
     Active Substance: INSULIN ASPART
     Dosage: 40 UNIT, TID
  3. ENBREL [Suspect]
     Active Substance: ETANERCEPT
     Indication: RHEUMATOID ARTHRITIS
     Dosage: UNK UNK, QWK
     Route: 065
     Dates: start: 201608
  4. LANTUS [Concomitant]
     Active Substance: INSULIN GLARGINE
     Dosage: 40 UNIT, TID

REACTIONS (3)
  - Injection site extravasation [Unknown]
  - Drug dose omission [Unknown]
  - Blood glucose increased [Unknown]

NARRATIVE: CASE EVENT DATE: 2016
